FAERS Safety Report 18669893 (Version 1)
Quarter: 2020Q4

REPORT INFORMATION
  Report Type: Spontaneous
  Country: GB (occurrence: GB)
  Receive Date: 20201228
  Receipt Date: 20201228
  Transmission Date: 20210114
  Serious: Yes (Hospitalization)
  Sender: FDA-Public Use
  Company Number: GB-PFIZER INC-2020507641

PATIENT
  Sex: Male

DRUGS (2)
  1. CANDESARTAN. [Suspect]
     Active Substance: CANDESARTAN
  2. IBUPROFEN. [Suspect]
     Active Substance: IBUPROFEN

REACTIONS (1)
  - Stevens-Johnson syndrome [Unknown]

NARRATIVE: CASE EVENT DATE: 2015
